FAERS Safety Report 25351153 (Version 1)
Quarter: 2025Q2

REPORT INFORMATION
  Report Type: Spontaneous
  Country: JP (occurrence: JP)
  Receive Date: 20250523
  Receipt Date: 20250523
  Transmission Date: 20250716
  Serious: Yes (Other)
  Sender: SANDOZ
  Company Number: JP-SANDOZ-SDZ2025JP034745

PATIENT
  Age: 8 Decade
  Sex: Female

DRUGS (11)
  1. DONEPEZIL HYDROCHLORIDE [Suspect]
     Active Substance: DONEPEZIL HYDROCHLORIDE
     Route: 065
  2. DONEPEZIL HYDROCHLORIDE [Suspect]
     Active Substance: DONEPEZIL HYDROCHLORIDE
     Route: 065
  3. DONEPEZIL HYDROCHLORIDE [Suspect]
     Active Substance: DONEPEZIL HYDROCHLORIDE
     Indication: Dementia
     Route: 065
  4. MIROGABALIN BESYLATE [Suspect]
     Active Substance: MIROGABALIN BESYLATE
     Indication: Scoliosis
     Route: 065
  5. PREGABALIN [Suspect]
     Active Substance: PREGABALIN
     Indication: Back pain
     Route: 065
  6. ARIPIPRAZOLE [Concomitant]
     Active Substance: ARIPIPRAZOLE
     Indication: Dementia
     Route: 065
  7. OLANZAPINE [Concomitant]
     Active Substance: OLANZAPINE
     Indication: Dementia
     Route: 065
  8. ACETAMINOPHEN [Concomitant]
     Active Substance: ACETAMINOPHEN
     Indication: Back pain
     Route: 065
  9. QUETIAPINE [Concomitant]
     Active Substance: QUETIAPINE
     Indication: Insomnia
     Route: 065
  10. TRAMADOL HYDROCHLORIDE [Concomitant]
     Active Substance: TRAMADOL HYDROCHLORIDE
     Indication: Back pain
     Route: 065
  11. HERBALS [Concomitant]
     Active Substance: HERBALS
     Indication: Dementia
     Route: 065

REACTIONS (2)
  - Substance-induced psychotic disorder [Recovered/Resolved]
  - Drug ineffective [Unknown]
